FAERS Safety Report 25363335 (Version 1)
Quarter: 2025Q2

REPORT INFORMATION
  Report Type: Spontaneous
  Country: US (occurrence: None)
  Receive Date: 20250526
  Receipt Date: 20250526
  Transmission Date: 20250717
  Serious: Yes (Disabling)
  Sender: FDA-CTU
  Company Number: None

PATIENT
  Age: 29 Year
  Sex: Male
  Weight: 99 kg

DRUGS (1)
  1. CIPROFLOXACIN [Suspect]
     Active Substance: CIPROFLOXACIN
     Indication: Infection
     Dates: start: 20161026, end: 20170515

REACTIONS (6)
  - Ligament injury [None]
  - Atlantoaxial instability [None]
  - Tendon injury [None]
  - Muscle injury [None]
  - Activities of daily living decreased [None]
  - Gait disturbance [None]

NARRATIVE: CASE EVENT DATE: 20170119
